FAERS Safety Report 4896908-3 (Version None)
Quarter: 2006Q1

REPORT INFORMATION
  Report Type: 
  Country: None (occurrence: None)
  Receive Date: 20060131
  Receipt Date: 20060125
  Transmission Date: 20060701
  Serious: Yes (Other)
  Sender: FDA-Public Use
  Company Number: US-BRISTOL-MYERS SQUIBB COMPANY-13260369

PATIENT
  Sex: Male

DRUGS (2)
  1. SUSTIVA [Suspect]
  2. NITROGLYN [Concomitant]
     Route: 048

REACTIONS (3)
  - ANGINA PECTORIS [None]
  - FLUSHING [None]
  - PALPITATIONS [None]
